FAERS Safety Report 12629564 (Version 2)
Quarter: 2016Q3

REPORT INFORMATION
  Report Type: Report from Study
  Country: CA (occurrence: CA)
  Receive Date: 20160808
  Receipt Date: 20160823
  Transmission Date: 20161109
  Serious: Yes (Hospitalization)
  Sender: FDA-Public Use
  Company Number: CA-PFIZER INC-2016372257

PATIENT
  Age: 59 Year
  Sex: Female

DRUGS (8)
  1. VITAMIN D [Concomitant]
     Active Substance: CHOLECALCIFEROL
     Dosage: 1000 IU, TID
     Route: 048
  2. VEDOLIZUMAB [Suspect]
     Active Substance: VEDOLIZUMAB
     Indication: CROHN^S DISEASE
     Dosage: 300 MG, UNK
     Route: 042
     Dates: start: 20160429
  3. FENTANYL. [Concomitant]
     Active Substance: FENTANYL
     Dosage: 100 ?G, UNK
  4. URSODIOL. [Concomitant]
     Active Substance: URSODIOL
     Dosage: 250 MG, QD
     Route: 048
  5. TYLENOL [Concomitant]
     Active Substance: ACETAMINOPHEN
     Indication: PAIN
     Dosage: UNK, BID
  6. PANTOLOC [Suspect]
     Active Substance: PANTOPRAZOLE SODIUM
     Dosage: UNK
     Route: 065
     Dates: end: 20010201
  7. MORPHINE [Concomitant]
     Active Substance: MORPHINE
     Dosage: 5 MG/ML, UNK
  8. ENTOCORT [Concomitant]
     Active Substance: BUDESONIDE
     Dosage: 9 MG, QD
     Route: 048

REACTIONS (1)
  - Anal fistula [Unknown]

NARRATIVE: CASE EVENT DATE: 201607
